FAERS Safety Report 17812140 (Version 4)
Quarter: 2021Q1

REPORT INFORMATION
  Report Type: Report from Study
  Country: US (occurrence: US)
  Receive Date: 20200521
  Receipt Date: 20210222
  Transmission Date: 20210419
  Serious: Yes (Life-Threatening, Other)
  Sender: FDA-Public Use
  Company Number: US-TEVA-2020-US-1238932

PATIENT
  Age: 67 Year
  Sex: Female

DRUGS (12)
  1. MEGESTROL [Concomitant]
     Active Substance: MEGESTROL
     Route: 065
     Dates: start: 20171116, end: 20180306
  2. 5?FLUOROURACIL [Suspect]
     Active Substance: FLUOROURACIL
     Indication: COLORECTAL CANCER METASTATIC
     Dosage: DATE OF THE LAST DOSE PRIOR TO THE EVENT: 27?NOV?2017, 3528 MG IV
     Route: 041
     Dates: start: 20171127
  3. IRINOTECAN [Suspect]
     Active Substance: IRINOTECAN
     Indication: COLORECTAL CANCER METASTATIC
     Dosage: DATE OF THE LAST DOSE PRIOR TO THE EVENT: 27?NOV?2017, 265 MG IV
     Route: 042
     Dates: start: 20171127, end: 20171127
  4. METOCLOPRAMIDE. [Concomitant]
     Active Substance: METOCLOPRAMIDE
     Route: 065
     Dates: start: 20170531, end: 20180306
  5. BEVACIZUMAB. [Suspect]
     Active Substance: BEVACIZUMAB
     Indication: COLORECTAL CANCER METASTATIC
     Dosage: DATE OF THE LAST DOSE PRIOR TO THE EVENT: 27?NOV?2017, 261 MG IV
     Route: 042
     Dates: start: 20171127
  6. LOPERAMIDE [Concomitant]
     Active Substance: LOPERAMIDE
     Route: 065
     Dates: start: 20171116, end: 20180306
  7. LEVOTHYROXINE. [Concomitant]
     Active Substance: LEVOTHYROXINE
     Route: 065
     Dates: start: 20170501, end: 20180306
  8. 5?FLUOROURACIL [Suspect]
     Active Substance: FLUOROURACIL
     Dosage: DATE OF THE LAST DOSE PRIOR TO THE EVENT: 27?NOV?2017, 588 MG IV BOLUS
     Route: 040
     Dates: start: 20171127, end: 20171127
  9. ONDANSETRON [Concomitant]
     Active Substance: ONDANSETRON
     Route: 065
     Dates: start: 20170503, end: 20180306
  10. LEUCOVORIN. [Suspect]
     Active Substance: LEUCOVORIN
     Indication: COLORECTAL CANCER METASTATIC
     Dosage: DATE OF THE LAST DOSE PRIOR TO THE EVENT: 27?NOV?2017, 588 MG IV
     Route: 042
     Dates: start: 20171127
  11. IRINOTECAN [Suspect]
     Active Substance: IRINOTECAN
     Route: 042
     Dates: start: 20171218
  12. PANTOPRAZOLE [Concomitant]
     Active Substance: PANTOPRAZOLE
     Route: 065
     Dates: start: 20170810, end: 20180306

REACTIONS (1)
  - Neutrophil count decreased [Recovered/Resolved]

NARRATIVE: CASE EVENT DATE: 20171211
